FAERS Safety Report 5851602-7 (Version None)
Quarter: 2008Q3

REPORT INFORMATION
  Report Type: 
  Country: None (occurrence: None)
  Receive Date: 20080820
  Receipt Date: 20080808
  Transmission Date: 20090109
  Serious: Yes (Hospitalization, Other)
  Sender: FDA-Public Use
  Company Number: DE-ELI_LILLY_AND_COMPANY-DE200808001902

PATIENT
  Sex: Male

DRUGS (9)
  1. HUMATROPE [Suspect]
     Indication: PITUITARY TUMOUR BENIGN
     Dosage: 0.2 MG, DAILY (1/D)
     Route: 058
     Dates: end: 20080201
  2. HYDROCORTISONE [Concomitant]
     Dosage: UNK, UNKNOWN
     Route: 065
  3. LEVOTHYROXINE SODIUM [Concomitant]
     Dosage: UNK, UNKNOWN
     Route: 065
  4. NEBIDO                             /00103107/ [Concomitant]
     Dosage: UNK, UNKNOWN
     Route: 065
  5. ASPIRIN [Concomitant]
     Dosage: UNK, UNKNOWN
     Route: 065
  6. CLONIDINE [Concomitant]
     Dosage: UNK, UNKNOWN
     Route: 065
  7. METOPROLOL TARTRATE [Concomitant]
     Dosage: UNK, UNKNOWN
     Route: 065
  8. RAMIPRIL [Concomitant]
     Dosage: UNK, UNKNOWN
     Route: 065
  9. AMLODIPINE [Concomitant]
     Dosage: UNK, UNKNOWN
     Route: 065

REACTIONS (2)
  - LARYNGEAL CANCER [None]
  - THYROID CANCER [None]
